FAERS Safety Report 15410098 (Version 1)
Quarter: 2018Q3

REPORT INFORMATION
  Report Type: Report from Study
  Country: None (occurrence: UY)
  Receive Date: 20180921
  Receipt Date: 20180921
  Transmission Date: 20181010
  Serious: Yes (Other)
  Sender: FDA-Public Use
  Company Number: UY-ABBVIE-18K-168-2320033-00

PATIENT
  Age: 38 Year
  Sex: Female

DRUGS (2)
  1. HUMIRA [Suspect]
     Active Substance: ADALIMUMAB
     Indication: RHEUMATOID ARTHRITIS
     Route: 058
     Dates: start: 20151010, end: 201803
  2. EVOQUIN [Concomitant]
     Active Substance: HYDROXYCHLOROQUINE SULFATE
     Indication: PRODUCT USED FOR UNKNOWN INDICATION

REACTIONS (5)
  - Renal cyst [Unknown]
  - Bronchospasm [Not Recovered/Not Resolved]
  - Bacterial test positive [Unknown]
  - Latent tuberculosis [Not Recovered/Not Resolved]
  - Kidney malrotation [Unknown]

NARRATIVE: CASE EVENT DATE: 201803
